APPROVED DRUG PRODUCT: CYKLOKAPRON
Active Ingredient: TRANEXAMIC ACID
Strength: 100MG/ML
Dosage Form/Route: INJECTABLE;INJECTION
Application: N019281 | Product #001 | TE Code: AP
Applicant: PFIZER INC
Approved: Dec 30, 1986 | RLD: Yes | RS: Yes | Type: RX